FAERS Safety Report 15695602 (Version 1)
Quarter: 2018Q4

REPORT INFORMATION
  Report Type: Spontaneous
  Country: SK (occurrence: SK)
  Receive Date: 20181206
  Receipt Date: 20181206
  Transmission Date: 20190205
  Serious: Yes (Hospitalization)
  Sender: FDA-Public Use
  Company Number: SK-PFIZER INC-2018499327

PATIENT
  Age: 33 Year
  Sex: Female
  Weight: 56 kg

DRUGS (3)
  1. SINUPRET [Suspect]
     Active Substance: HERBALS
     Indication: UPPER RESPIRATORY TRACT INFECTION
     Dosage: 2 DF, UNK
     Route: 048
  2. DALACIN C [Suspect]
     Active Substance: CLINDAMYCIN PHOSPHATE
     Indication: UPPER RESPIRATORY TRACT INFECTION
     Dosage: 300 MG, 3X/DAY(EVERY 8 HOUR)
     Route: 048
     Dates: start: 20181023, end: 20181029
  3. ERDOMED [Suspect]
     Active Substance: ERDOSTEINE
     Indication: UPPER RESPIRATORY TRACT INFECTION
     Dosage: 1 DF, 2X/DAY (EVERY 12 HOUR)
     Route: 048
     Dates: start: 20181023, end: 20181025

REACTIONS (2)
  - Localised oedema [Recovered/Resolved]
  - Rash [Recovered/Resolved]

NARRATIVE: CASE EVENT DATE: 20181029
